FAERS Safety Report 9602798 (Version 3)
Quarter: 2014Q1

REPORT INFORMATION
  Report Type: Spontaneous
  Country: US (occurrence: None)
  Receive Date: 20131003
  Receipt Date: 20140224
  Transmission Date: 20141002
  Serious: Yes (Hospitalization)
  Sender: FDA-Public Use
  Company Number: KAD201309-001271

PATIENT
  Age: 58 Year
  Sex: Female

DRUGS (14)
  1. RIBAVIRIN [Suspect]
     Indication: HEPATITIS C
     Dosage: 1200 MG (600 MG TWICE DAILY)
     Route: 048
     Dates: start: 20130528, end: 20130901
  2. ABT-450 [Suspect]
     Indication: HEPATITIS C
     Dosage: (ONCE DAILY)
     Route: 048
     Dates: start: 20130528, end: 20130901
  3. HYDROCORTISONE (HYDROCORTISONE) [Concomitant]
  4. BABY ASPIRIN (ACETYLSALICYLIC ACUD) [Concomitant]
  5. BENADRYL (DIPHENHYDRAMINE HYDROCHLORIDE) [Concomitant]
  6. CEPHALEXIN (CEPHALEXIN) [Concomitant]
  7. IBUPROFEN (IBUPROFEN) [Concomitant]
  8. LISINOPRIL/ HCTZ (HYDROCHLORTHIAZIDE LISINOPRIL) [Concomitant]
  9. MELOXICAM (MELOXICAM) [Concomitant]
  10. MULTIVITAMIN (ERGOCALCIFEROL, ASCORBIC ACID, PYRIDOXINE HYDROCHLORIDE, THIAMINE HYDROCHLORIDE, RETINOL, RIBOFLAVIN, NICOTINAMIDE, CALCIUM PANTOTHENATE) [Concomitant]
  11. SYNTHROID (LEVOTHYROXINE SODIUM) (50 MICROGRAM) [Concomitant]
  12. ZANTAC (RANITIDINE HYDROCHLORIDE) (150 MILLIGRAM) [Concomitant]
  13. HYZAAR (HYDROCHLOROTHIAZIDE, LOSARTAN POTASSIUM) [Concomitant]
  14. ABT-333 [Suspect]
     Indication: HEPATITIS C
     Dosage: 500 MG (250 MG, TWICE DAILY)
     Route: 048
     Dates: start: 20130820, end: 20130901

REACTIONS (1)
  - Angioedema [None]
